FAERS Safety Report 4648271-0 (Version None)
Quarter: 2005Q2

REPORT INFORMATION
  Report Type: 
  Country: None (occurrence: None)
  Receive Date: 20050426
  Receipt Date: 20050415
  Transmission Date: 20051028
  Serious: Yes (Other)
  Sender: FDA-Public Use
  Company Number: 2005-04-0978

PATIENT
  Age: 25 Year
  Sex: Female
  Weight: 52.6173 kg

DRUGS (1)
  1. CLARITIN [Suspect]
     Indication: SUICIDE ATTEMPT
     Dosage: 5 TABS ORAL
     Route: 048
     Dates: start: 20050415, end: 20050415

REACTIONS (3)
  - MULTIPLE DRUG OVERDOSE [None]
  - SOMNOLENCE [None]
  - SUICIDE ATTEMPT [None]
